FAERS Safety Report 7576517-8 (Version None)
Quarter: 2011Q2

REPORT INFORMATION
  Report Type: 
  Country: None (occurrence: None)
  Receive Date: 20110628
  Receipt Date: 20110531
  Transmission Date: 20111010
  Serious: No
  Sender: FDA-Public Use
  Company Number: US-BAYER-2011-047550

PATIENT
  Age: 64 Year
  Sex: Female
  Weight: 65 kg

DRUGS (5)
  1. DOXEPIN [Concomitant]
  2. XANAX [Concomitant]
  3. BENADRYL [Concomitant]
  4. SYNTHROID [Concomitant]
  5. ALEVE (CAPLET) [Suspect]
     Indication: NASAL CONGESTION
     Dosage: 1 DF, QD
     Route: 048
     Dates: start: 20110528

REACTIONS (1)
  - INSOMNIA [None]
